FAERS Safety Report 9340632 (Version 1)
Quarter: 2013Q2

REPORT INFORMATION
  Report Type: Spontaneous
  Country: US (occurrence: US)
  Receive Date: 20130610
  Receipt Date: 20130610
  Transmission Date: 20140414
  Serious: Yes (Other)
  Sender: FDA-Public Use
  Company Number: US-GLAXOSMITHKLINE-A1018886A

PATIENT
  Age: 63 Year
  Sex: Male
  Weight: 81 kg

DRUGS (9)
  1. POTIGA [Suspect]
     Indication: EPILEPSY
     Dosage: 50MG THREE TIMES PER DAY
     Route: 048
     Dates: start: 20130305, end: 20130318
  2. VIMPAT [Concomitant]
  3. DEPAKOTE [Concomitant]
  4. ZONEGRAN [Concomitant]
  5. MOTRIN [Concomitant]
  6. COLACE [Concomitant]
  7. LOPRESSOR [Concomitant]
  8. LISINOPRIL [Concomitant]
  9. FERROUS SULFATE [Concomitant]

REACTIONS (3)
  - Urinary retention [Recovered/Resolved]
  - Abdominal pain [Recovered/Resolved]
  - Bladder catheterisation [Unknown]
